FAERS Safety Report 7273305-7 (Version None)
Quarter: 2011Q1

REPORT INFORMATION
  Report Type: 
  Country: None (occurrence: None)
  Receive Date: 20110203
  Receipt Date: 20110126
  Transmission Date: 20110831
  Serious: Yes (Other)
  Sender: FDA-Public Use
  Company Number: BR-SANOFI-AVENTIS-2011SA005549

PATIENT
  Age: 70 Year
  Sex: Male

DRUGS (2)
  1. LANTUS [Suspect]
     Route: 058
  2. SOLOSTAR [Suspect]

REACTIONS (1)
  - CORONARY ARTERY DISEASE [None]
